FAERS Safety Report 11966565 (Version 3)
Quarter: 2022Q2

REPORT INFORMATION
  Report Type: Report from Study
  Country: GB (occurrence: GB)
  Receive Date: 20160127
  Receipt Date: 20220404
  Transmission Date: 20220720
  Serious: Yes (Hospitalization)
  Sender: FDA-Public Use
  Company Number: GB-SHIRE-GB201600671

PATIENT
  Age: 6 Year
  Sex: Male

DRUGS (3)
  1. IDURSULFASE [Suspect]
     Active Substance: IDURSULFASE
     Indication: Mucopolysaccharidosis II
     Dosage: 0.5 MILLIGRAM/KILOGRAM, 1/WEEK
     Route: 041
     Dates: start: 20070604
  2. IDURSULFASE [Suspect]
     Active Substance: IDURSULFASE
     Dosage: 0.45 MILLIGRAM/KILOGRAM, 1/WEEK
     Route: 041
     Dates: start: 20070604
  3. IDURSULFASE [Suspect]
     Active Substance: IDURSULFASE
     Dosage: 0.44 MILLIGRAM/KILOGRAM, 1/WEEK
     Route: 041
     Dates: start: 20171204

REACTIONS (1)
  - Knee deformity [Unknown]

NARRATIVE: CASE EVENT DATE: 20120612
